FAERS Safety Report 4934926-7 (Version None)
Quarter: 2006Q1

REPORT INFORMATION
  Report Type: 
  Country: None (occurrence: None)
  Receive Date: 20060306
  Receipt Date: 20060306
  Transmission Date: 20060701
  Serious: Yes (Hospitalization)
  Sender: FDA-Public Use
  Company Number: None

PATIENT
  Age: 72 Year
  Sex: Male

DRUGS (1)
  1. ATENOLOL [Suspect]
     Indication: HYPERTENSION
     Dosage: 100 MG  QD PO
     Route: 048
     Dates: start: 20050628, end: 20050701

REACTIONS (5)
  - ATRIOVENTRICULAR BLOCK FIRST DEGREE [None]
  - BALANCE DISORDER [None]
  - BUNDLE BRANCH BLOCK RIGHT [None]
  - DIZZINESS [None]
  - SINUS BRADYCARDIA [None]
